FAERS Safety Report 8346163-7 (Version None)
Quarter: 2012Q1

REPORT INFORMATION
  Report Type: 
  Country: None (occurrence: None)
  Receive Date: 20120315
  Receipt Date: 20110502
  Transmission Date: 20120608
  Serious: No
  Sender: FDA-Public Use
  Company Number: PHHY2011US37923

PATIENT
  Age: 52 Year
  Sex: Male

DRUGS (1)
  1. GILENYA [Suspect]
     Dosage: UNK UKN, UNK, ORAL
     Route: 048
     Dates: start: 20110427

REACTIONS (3)
  - BLOOD PRESSURE DECREASED [None]
  - FATIGUE [None]
  - ABDOMINAL DISCOMFORT [None]
